FAERS Safety Report 8600680-0 (Version None)
Quarter: 2012Q3

REPORT INFORMATION
  Report Type: 
  Country: None (occurrence: None)
  Receive Date: 20120803
  Receipt Date: 20120723
  Transmission Date: 20120928
  Serious: Yes (Other)
  Sender: FDA-Public Use
  Company Number: 2012P1050897

PATIENT
  Age: 60 Year

DRUGS (1)
  1. ALBENDAZOLE (NO PREF. NAME) [Suspect]
     Indication: ECHINOCOCCIASIS
     Dosage: 200 MG;PO
     Route: 048

REACTIONS (2)
  - DEVICE FAILURE [None]
  - LIVER FUNCTION TEST ABNORMAL [None]
